FAERS Safety Report 13764165 (Version 2)
Quarter: 2018Q1

REPORT INFORMATION
  Report Type: Spontaneous
  Country: US (occurrence: US)
  Receive Date: 20170718
  Receipt Date: 20180115
  Transmission Date: 20180508
  Serious: No
  Sender: FDA-Public Use
  Company Number: US-VANDA PHARMACEUTICALS, INC-2017TASUS001694

PATIENT
  Age: 69 Year
  Sex: Male

DRUGS (1)
  1. HETLIOZ [Suspect]
     Active Substance: TASIMELTEON
     Indication: NON-24-HOUR SLEEP-WAKE DISORDER
     Dosage: 20 MG, Q24HRS (AN HOUR BEFORE BEDTIME)
     Route: 048
     Dates: start: 20170613, end: 2017

REACTIONS (3)
  - Paranasal sinus hypersecretion [Unknown]
  - Sinus disorder [Unknown]
  - Middle insomnia [Unknown]

NARRATIVE: CASE EVENT DATE: 20170702
